FAERS Safety Report 10208092 (Version 5)
Quarter: 2015Q3

REPORT INFORMATION
  Report Type: Report from Study
  Country: JP (occurrence: JP)
  Receive Date: 20140530
  Receipt Date: 20150724
  Transmission Date: 20151125
  Serious: Yes (Death, Hospitalization, Other)
  Sender: FDA-Public Use
  Company Number: PHHY2014JP065783

PATIENT
  Age: 36 Year
  Sex: Male

DRUGS (14)
  1. CERTICAN [Suspect]
     Active Substance: EVEROLIMUS
     Indication: HEART TRANSPLANT
     Dosage: 1.5 MG, QD
     Route: 048
     Dates: start: 20110408, end: 20110509
  2. NEORAL [Concomitant]
     Active Substance: CYCLOSPORINE
     Indication: HEART TRANSPLANT
     Dosage: 175 MG, UNK
     Route: 048
     Dates: start: 20110408, end: 20110509
  3. CERTICAN [Suspect]
     Active Substance: EVEROLIMUS
     Dosage: 2 MG, QD
     Route: 048
     Dates: start: 20110512, end: 20110513
  4. MEVALOTIN [Concomitant]
     Active Substance: PRAVASTATIN SODIUM
     Indication: PRODUCT USED FOR UNKNOWN INDICATION
     Dosage: 10 MG, UNK
     Route: 048
     Dates: start: 20080125, end: 20110513
  5. CERTICAN [Suspect]
     Active Substance: EVEROLIMUS
     Dosage: 1 MG, QD
     Route: 048
     Dates: start: 20110510, end: 20110511
  6. TACROLIMUS. [Suspect]
     Active Substance: TACROLIMUS
     Indication: PRODUCT USED FOR UNKNOWN INDICATION
     Dosage: UNK
     Route: 065
  7. NEORAL [Concomitant]
     Active Substance: CYCLOSPORINE
     Dosage: 75 MG, UNK
     Route: 048
     Dates: start: 20110510, end: 20110512
  8. PROGRAF [Concomitant]
     Active Substance: TACROLIMUS\TACROLIMUS ANHYDROUS
     Indication: HEART TRANSPLANT
     Dosage: 5 MG, UNK
     Route: 048
     Dates: start: 20110714, end: 20110719
  9. PROGRAF [Concomitant]
     Active Substance: TACROLIMUS\TACROLIMUS ANHYDROUS
     Dosage: 3 MG, UNK
     Route: 048
     Dates: start: 20110720, end: 20110723
  10. RENIVACE [Concomitant]
     Active Substance: ENALAPRIL
     Indication: PRODUCT USED FOR UNKNOWN INDICATION
     Dosage: 2.5 MG, UNK
     Route: 048
     Dates: start: 20080125, end: 20110517
  11. CELLCEPT [Concomitant]
     Active Substance: MYCOPHENOLATE MOFETIL\MYCOPHENOLATE MOFETIL HYDROCHLORIDE
     Dosage: 500 MG, UNK
     Route: 048
     Dates: start: 20110714, end: 20110720
  12. CERTICAN [Suspect]
     Active Substance: EVEROLIMUS
     Dosage: 1.5 MG, QD
     Route: 048
     Dates: start: 20110714, end: 20110724
  13. PREDONINE [Suspect]
     Active Substance: PREDNISOLONE\PREDNISOLONE ACETATE\PREDNISOLONE SODIUM SUCCINATE
     Indication: PRODUCT USED FOR UNKNOWN INDICATION
     Dosage: UNK
     Route: 065
  14. CELLCEPT [Concomitant]
     Active Substance: MYCOPHENOLATE MOFETIL\MYCOPHENOLATE MOFETIL HYDROCHLORIDE
     Indication: HEART TRANSPLANT
     Dosage: 2500 MG, UNK
     Route: 048
     Dates: start: 20080125, end: 20110512

REACTIONS (15)
  - Graft loss [Unknown]
  - Blood creatinine increased [Unknown]
  - Haemoglobin decreased [Unknown]
  - Device related infection [Fatal]
  - Oral administration complication [Unknown]
  - Blood alkaline phosphatase increased [Unknown]
  - Circulatory collapse [Fatal]
  - Heart transplant rejection [Fatal]
  - Platelet count decreased [Unknown]
  - Cardiac failure [Not Recovered/Not Resolved]
  - Gamma-glutamyltransferase increased [Unknown]
  - Acute myocardial infarction [Unknown]
  - Pneumonia [Fatal]
  - Haematocrit decreased [Unknown]
  - Arteritis coronary [Unknown]

NARRATIVE: CASE EVENT DATE: 20110510
